FAERS Safety Report 23944153 (Version 2)
Quarter: 2024Q2

REPORT INFORMATION
  Report Type: Spontaneous
  Country: ES (occurrence: ES)
  Receive Date: 20240606
  Receipt Date: 20240621
  Transmission Date: 20240717
  Serious: Yes (Hospitalization)
  Sender: FDA-Public Use
  Company Number: ES-TEVA-VS-3205540

PATIENT
  Age: 21 Year
  Sex: Male

DRUGS (1)
  1. ALPRAZOLAM [Suspect]
     Active Substance: ALPRAZOLAM
     Indication: Product used for unknown indication
     Dosage: OVER 40MG PER DAY
     Route: 048

REACTIONS (4)
  - Drug withdrawal syndrome [Unknown]
  - Intentional product misuse [Unknown]
  - Treatment noncompliance [Unknown]
  - Schizophrenia [Unknown]
